FAERS Safety Report 5508165-5 (Version None)
Quarter: 2007Q4

REPORT INFORMATION
  Report Type: 
  Country: None (occurrence: None)
  Receive Date: 20071106
  Receipt Date: 20071026
  Transmission Date: 20080405
  Serious: Yes (Disabling)
  Sender: FDA-Public Use
  Company Number: JP-SANOFI-SYNTHELABO-A01200711749

PATIENT
  Age: 83 Year
  Sex: Female
  Weight: 40 kg

DRUGS (5)
  1. ARICEPT [Concomitant]
     Indication: DRUG USE FOR UNKNOWN INDICATION
     Dosage: UNK
     Route: 065
  2. DOGMATYL [Concomitant]
     Indication: DRUG USE FOR UNKNOWN INDICATION
     Dosage: 100 MG
     Route: 065
  3. PLAVIX [Suspect]
     Route: 048
     Dates: start: 20070822, end: 20070919
  4. TICLOPIDINE HCL [Concomitant]
     Indication: CEREBRAL INFARCTION
     Dosage: 100 MG
     Route: 065
     Dates: start: 20050704, end: 20070821
  5. TICLOPIDINE HCL [Concomitant]
     Dosage: 100 MG
     Route: 065
     Dates: start: 20070920

REACTIONS (1)
  - MALAISE [None]
